FAERS Safety Report 10475478 (Version 1)
Quarter: 2014Q3

REPORT INFORMATION
  Report Type: Spontaneous
  Country: US (occurrence: None)
  Receive Date: 20140924
  Receipt Date: 20140924
  Transmission Date: 20150326
  Serious: Yes (Hospitalization)
  Sender: FDA-Public Use
  Company Number: None

PATIENT
  Age: 92 Year
  Sex: Female
  Weight: 50.8 kg

DRUGS (13)
  1. ZOLOFT [Concomitant]
     Active Substance: SERTRALINE HYDROCHLORIDE
  2. APAP [Concomitant]
     Active Substance: ACETAMINOPHEN
  3. CILOSTAZOL. [Concomitant]
     Active Substance: CILOSTAZOL
  4. TRAMADOL [Concomitant]
     Active Substance: TRAMADOL
  5. CHLORTHALIDONE. [Concomitant]
     Active Substance: CHLORTHALIDONE
  6. CARVEDILOL. [Concomitant]
     Active Substance: CARVEDILOL
  7. DIGOXIN. [Suspect]
     Active Substance: DIGOXIN
     Indication: ATRIAL FIBRILLATION
     Dosage: CHRONIC
     Route: 048
  8. PLAVIX [Concomitant]
     Active Substance: CLOPIDOGREL BISULFATE
  9. ASA [Concomitant]
     Active Substance: ASPIRIN
  10. DEXTROMETHRO [Concomitant]
  11. KEPPRA [Concomitant]
     Active Substance: LEVETIRACETAM
  12. PRAVASTATIN [Concomitant]
     Active Substance: PRAVASTATIN\PRAVASTATIN SODIUM
  13. LIDODERM [Concomitant]
     Active Substance: LIDOCAINE

REACTIONS (6)
  - Bradycardia [None]
  - Cardioactive drug level above therapeutic [None]
  - Toxicity to various agents [None]
  - Hypokalaemia [None]
  - Lethargy [None]
  - Mental status changes [None]

NARRATIVE: CASE EVENT DATE: 20140315
